FAERS Safety Report 18467859 (Version 1)
Quarter: 2020Q4

REPORT INFORMATION
  Report Type: Spontaneous
  Country: ES (occurrence: ES)
  Receive Date: 20201105
  Receipt Date: 20201105
  Transmission Date: 20210114
  Serious: Yes (Hospitalization)
  Sender: FDA-Public Use
  Company Number: ES-PFIZER INC-2020424813

PATIENT
  Age: 40 Year
  Sex: Female

DRUGS (2)
  1. INDOMETACIN [Suspect]
     Active Substance: INDOMETHACIN
     Indication: PYREXIA
     Dosage: 50 MG, 3X/DAY (EVERY 8H)
     Route: 048
     Dates: start: 20200321, end: 20200401
  2. FLUCONAZOLE. [Suspect]
     Active Substance: FLUCONAZOLE
     Indication: CANDIDA INFECTION
     Dosage: 100 MG, 1X/DAY (EVERY 24H)
     Route: 048
     Dates: start: 20200330, end: 20200401

REACTIONS (2)
  - Hepatitis acute [Recovered/Resolved]
  - Cholestasis [Recovered/Resolved]

NARRATIVE: CASE EVENT DATE: 20200330
